APPROVED DRUG PRODUCT: HALOBETASOL PROPIONATE
Active Ingredient: HALOBETASOL PROPIONATE
Strength: 0.05%
Dosage Form/Route: CREAM;TOPICAL
Application: A077001 | Product #001 | TE Code: AB
Applicant: FOUGERA PHARMACEUTICALS INC
Approved: Dec 16, 2004 | RLD: No | RS: No | Type: RX